FAERS Safety Report 15461621 (Version 2)
Quarter: 2021Q1

REPORT INFORMATION
  Report Type: Spontaneous
  Country: US (occurrence: US)
  Receive Date: 20181003
  Receipt Date: 20210301
  Transmission Date: 20210419
  Serious: Yes (Other)
  Sender: FDA-Public Use
  Company Number: US-SHIRE-US201838127

PATIENT
  Sex: Female
  Weight: 56.24 kg

DRUGS (9)
  1. STELARA [Concomitant]
     Active Substance: USTEKINUMAB
     Dosage: UNK
     Route: 065
  2. ACETAMINOPHEN. [Concomitant]
     Active Substance: ACETAMINOPHEN
     Dosage: UNK
     Route: 065
  3. EPINEPHRINE. [Concomitant]
     Active Substance: EPINEPHRINE
     Dosage: UNK
     Route: 065
  4. DIPHENHYDRAMINE. [Concomitant]
     Active Substance: DIPHENHYDRAMINE
     Dosage: UNK
     Route: 065
  5. CUVITRU [Suspect]
     Active Substance: HUMAN IMMUNOGLOBULIN G
     Indication: GASTROINTESTINAL DISORDER
     Dosage: 24 GRAM, 1/WEEK
     Route: 058
     Dates: start: 20200314
  6. LMX4 [Concomitant]
     Active Substance: LIDOCAINE
  7. CYANOCOBALAMIN. [Concomitant]
     Active Substance: CYANOCOBALAMIN
     Dosage: UNK
  8. CUVITRU [Suspect]
     Active Substance: HUMAN IMMUNOGLOBULIN G
     Indication: IMMUNODEFICIENCY COMMON VARIABLE
     Dosage: UNK
     Route: 065
  9. TPN [NICOTINAMIDE;PYRIDOXINE HYDROCHLORIDE;TYROSINE] [Concomitant]
     Active Substance: NIACINAMIDE\PYRIDOXINE HYDROCHLORIDE\TYROSINE
     Dosage: UNK
     Route: 065

REACTIONS (3)
  - Inflammatory bowel disease [Unknown]
  - Injection site erythema [Unknown]
  - Injection site warmth [Unknown]
